FAERS Safety Report 4307711-7 (Version None)
Quarter: 2004Q1

REPORT INFORMATION
  Report Type: 
  Country: None (occurrence: None)
  Receive Date: 20040225
  Receipt Date: 20030522
  Transmission Date: 20041129
  Serious: Yes (Other)
  Sender: FDA-Public Use
  Company Number: WAES 0305USA02423

PATIENT
  Age: 53 Year
  Sex: Male

DRUGS (3)
  1. ZOCOR [Suspect]
     Dosage: PO
     Route: 048
     Dates: start: 20020529
  2. ZOCOR [Suspect]
     Dosage: PO
     Route: 048
     Dates: end: 20020528
  3. LOPID [Concomitant]

REACTIONS (1)
  - RHABDOMYOLYSIS [None]
